FAERS Safety Report 16285340 (Version 1)
Quarter: 2019Q2

REPORT INFORMATION
  Report Type: Spontaneous
  Country: US (occurrence: US)
  Receive Date: 20190506
  Receipt Date: 20190506
  Transmission Date: 20190711
  Serious: Yes (Disabling)
  Sender: FDA-Public Use
  Company Number: None

PATIENT
  Age: 38 Year
  Sex: Female
  Weight: 74.25 kg

DRUGS (2)
  1. PEPCID [Concomitant]
     Active Substance: FAMOTIDINE
  2. CIPROFLOXACIN. [Suspect]
     Active Substance: CIPROFLOXACIN
     Indication: INFECTION
     Route: 048
     Dates: start: 20181002, end: 20181007

REACTIONS (10)
  - Deafness [None]
  - Anxiety [None]
  - Depression [None]
  - Impaired work ability [None]
  - Tinnitus [None]
  - Tendon rupture [None]
  - Arthralgia [None]
  - Tendonitis [None]
  - Cartilage injury [None]
  - Paraesthesia [None]

NARRATIVE: CASE EVENT DATE: 20181003
